FAERS Safety Report 5409784-7 (Version None)
Quarter: 2007Q3

REPORT INFORMATION
  Report Type: 
  Country: None (occurrence: None)
  Receive Date: 20070809
  Receipt Date: 20070730
  Transmission Date: 20080115
  Serious: Yes (Hospitalization)
  Sender: FDA-Public Use
  Company Number: US-ROCHE-506669

PATIENT
  Age: 62 Year
  Sex: Female
  Weight: 54 kg

DRUGS (12)
  1. XELODA [Suspect]
     Indication: METASTASES TO SMALL INTESTINE
     Dosage: THERAPY REPORTED FOR 14 DAYS.
     Route: 065
     Dates: start: 20070529, end: 20070612
  2. OXALIPLATIN [Suspect]
     Indication: METASTASES TO SMALL INTESTINE
     Route: 042
     Dates: start: 20070529
  3. AMITRIPTYLIN. HYDROCHLORID. [Concomitant]
     Dosage: DOSAGER EGIMEN REPORTED AS 10 MG.
     Route: 048
  4. DIAZEPAM [Concomitant]
     Route: 048
  5. PRILOSEC [Concomitant]
     Dosage: IN THE MORNING.
     Route: 048
  6. ACTONEL [Concomitant]
     Dosage: IN THE MORNING.
     Route: 048
  7. DECADRON [Concomitant]
     Dosage: IN THE MORNING.
     Route: 048
  8. LOMOTIL [Concomitant]
  9. IMODIUM [Concomitant]
  10. SANDOSTATIN [Concomitant]
  11. PROPOXYPHENE HYDROCHLORIDE [Concomitant]
  12. UNSPECIFIED DRUG [Concomitant]
     Dosage: DRUG REPORTED AS CONPAZINE FINES OF OPALIM.

REACTIONS (3)
  - DIARRHOEA [None]
  - HYPOCALCAEMIA [None]
  - HYPOPHOSPHATAEMIA [None]
